FAERS Safety Report 5893598-8 (Version None)
Quarter: 2008Q3

REPORT INFORMATION
  Report Type: 
  Country: None (occurrence: None)
  Receive Date: 20080923
  Receipt Date: 20070911
  Transmission Date: 20090109
  Serious: No
  Sender: FDA-Public Use
  Company Number: US-ASTRAZENECA-2007UW21428

PATIENT
  Sex: Female

DRUGS (1)
  1. SEROQUEL [Suspect]
     Indication: BIPOLAR I DISORDER
     Route: 048

REACTIONS (5)
  - ABNORMAL SENSATION IN EYE [None]
  - DIZZINESS [None]
  - EYE DISORDER [None]
  - HYPOAESTHESIA [None]
  - PRURITUS [None]
